FAERS Safety Report 25082574 (Version 1)
Quarter: 2025Q1

REPORT INFORMATION
  Report Type: Spontaneous
  Country: CO (occurrence: CO)
  Receive Date: 20250317
  Receipt Date: 20250317
  Transmission Date: 20250408
  Serious: Yes (Hospitalization, Other)
  Sender: NOVO NORDISK
  Company Number: CO-NOVOPROD-1386016

PATIENT
  Age: 87 Year
  Sex: Female
  Weight: 52 kg

DRUGS (3)
  1. LEVEMIR [Suspect]
     Active Substance: INSULIN DETEMIR
     Indication: Type 2 diabetes mellitus
     Dosage: 35 IU, QD
     Route: 058
     Dates: start: 2015
  2. NOVORAPID [Suspect]
     Active Substance: INSULIN ASPART
     Indication: Type 2 diabetes mellitus
     Dosage: 24 IU, QD
     Route: 058
     Dates: start: 201506
  3. METFORMIN [Concomitant]
     Active Substance: METFORMIN HYDROCHLORIDE
     Indication: Type 2 diabetes mellitus
     Route: 048
     Dates: start: 2003, end: 2023

REACTIONS (10)
  - Road traffic accident [Recovered/Resolved]
  - Ankle fracture [Recovered/Resolved]
  - Inflammation [Recovered/Resolved]
  - Decreased appetite [Recovered/Resolved]
  - Somnolence [Recovered/Resolved]
  - Speech disorder [Recovered/Resolved]
  - Depression [Recovered/Resolved]
  - Cardiovascular disorder [Recovered/Resolved]
  - Blister [Recovered/Resolved]
  - Leg amputation [Recovered/Resolved]

NARRATIVE: CASE EVENT DATE: 20220601
